FAERS Safety Report 8200489-6 (Version None)
Quarter: 2012Q1

REPORT INFORMATION
  Report Type: 
  Country: None (occurrence: None)
  Receive Date: 20120312
  Receipt Date: 20120302
  Transmission Date: 20120608
  Serious: Yes (Hospitalization, Other)
  Sender: FDA-Public Use
  Company Number: US-BAYER-2011-083622

PATIENT
  Age: 30 Year
  Sex: Female
  Weight: 108.84 kg

DRUGS (7)
  1. SINGULAIR [Concomitant]
     Indication: BRONCHITIS
     Route: 048
  2. ALBUTEROL [Concomitant]
     Indication: BRONCHITIS
     Dosage: UNK
     Dates: start: 20030101
  3. HYDROCORTISONE [Concomitant]
     Dosage: UNK
     Dates: start: 20030101
  4. ZITHROMAX [Concomitant]
     Indication: BRONCHITIS
     Dosage: UNK
     Dates: start: 20030501
  5. ZITHROMAX [Concomitant]
     Indication: BRONCHITIS
     Dosage: UNK
     Dates: start: 20030501
  6. YAZ [Suspect]
     Dosage: UNK
     Dates: start: 20030201, end: 20030501
  7. METFORMIN HCL [Concomitant]
     Indication: INSULIN RESISTANCE
     Dosage: UNK
     Route: 048
     Dates: start: 20030101

REACTIONS (8)
  - CHEST PAIN [None]
  - DYSPNOEA [None]
  - DEEP VEIN THROMBOSIS [None]
  - PAIN [None]
  - EMOTIONAL DISTRESS [None]
  - PULMONARY EMBOLISM [None]
  - PAIN IN EXTREMITY [None]
  - INJURY [None]
